FAERS Safety Report 17193823 (Version 1)
Quarter: 2019Q4

REPORT INFORMATION
  Report Type: Report from Study
  Country: US (occurrence: US)
  Receive Date: 20191223
  Receipt Date: 20191223
  Transmission Date: 20200122
  Serious: No
  Sender: FDA-Public Use
  Company Number: US-INCYTE CORPORATION-2019IN011413

PATIENT

DRUGS (1)
  1. JAKAFI [Suspect]
     Active Substance: RUXOLITINIB
     Indication: POLYCYTHAEMIA VERA
     Route: 065

REACTIONS (6)
  - Platelet count abnormal [Unknown]
  - Dysgeusia [Recovering/Resolving]
  - Increased appetite [Unknown]
  - Weight increased [Unknown]
  - Energy increased [Unknown]
  - Dizziness [Recovered/Resolved]
